FAERS Safety Report 24306043 (Version 1)
Quarter: 2024Q3

REPORT INFORMATION
  Report Type: Spontaneous
  Country: NL (occurrence: NL)
  Receive Date: 20240911
  Receipt Date: 20240911
  Transmission Date: 20241017
  Serious: Yes (Other)
  Sender: AUROBINDO
  Company Number: NL-LRB-01000599

PATIENT
  Age: 62 Year
  Sex: Female
  Weight: 71 kg

DRUGS (2)
  1. PREDNISOLONE [Suspect]
     Active Substance: PREDNISOLONE
     Indication: Chondrocalcinosis
     Dosage: 1 DOSAGE FORM
     Route: 065
     Dates: start: 20240710
  2. COLCHICINE [Suspect]
     Active Substance: COLCHICINE
     Indication: Chondrocalcinosis
     Dosage: 0.5 MILLIGRAM(1 PIECE TWICE A DAY)
     Route: 065
     Dates: start: 20240708

REACTIONS (1)
  - Neuropathy peripheral [Recovering/Resolving]
